FAERS Safety Report 16683778 (Version 2)
Quarter: 2019Q3

REPORT INFORMATION
  Report Type: Spontaneous
  Country: US (occurrence: US)
  Receive Date: 20190808
  Receipt Date: 20190902
  Transmission Date: 20191004
  Serious: Yes (Hospitalization)
  Sender: FDA-Public Use
  Company Number: US-INSMED, INC.-US-INS-19-02611

PATIENT
  Sex: Female

DRUGS (2)
  1. ARIKAYCE [Suspect]
     Active Substance: AMIKACIN
     Indication: MYCOBACTERIAL INFECTION
     Route: 055
     Dates: start: 20190430
  2. LAMIRA NEBULIZER SYSTEM [Suspect]
     Active Substance: DEVICE

REACTIONS (8)
  - Chills [Unknown]
  - Dizziness [Unknown]
  - Pulmonary hypertension [Recovering/Resolving]
  - Feeling cold [Unknown]
  - Pain of skin [Unknown]
  - Polyuria [Unknown]
  - Dyspnoea [Unknown]
  - Product dose omission [Unknown]
